FAERS Safety Report 20797239 (Version 1)
Quarter: 2022Q2

REPORT INFORMATION
  Report Type: Spontaneous
  Country: PT (occurrence: TH)
  Receive Date: 20220506
  Receipt Date: 20220506
  Transmission Date: 20220721
  Serious: Yes (Other)
  Sender: FDA-Public Use
  Company Number: PT-GLAXOSMITHKLINE-PT2022GSK073636

PATIENT
  Age: 27 Year
  Sex: Female

DRUGS (1)
  1. ATOVAQUONE\PROGUANIL HYDROCHLORIDE [Suspect]
     Active Substance: ATOVAQUONE\PROGUANIL HYDROCHLORIDE
     Indication: Malaria prophylaxis
     Dosage: UNK

REACTIONS (11)
  - Mania [Recovered/Resolved]
  - Psychotic symptom [Recovered/Resolved]
  - Mental disorder [Recovered/Resolved]
  - Insomnia [Recovered/Resolved]
  - Pressure of speech [Recovered/Resolved]
  - Restlessness [Recovered/Resolved]
  - Flight of ideas [Recovered/Resolved]
  - Delusion of grandeur [Recovered/Resolved]
  - Dystonia [Recovered/Resolved]
  - Pain [Recovered/Resolved]
  - Muscle tightness [Recovered/Resolved]
